FAERS Safety Report 20881615 (Version 1)
Quarter: 2022Q2

REPORT INFORMATION
  Report Type: Report from Study
  Country: CA (occurrence: CA)
  Receive Date: 20220527
  Receipt Date: 20220527
  Transmission Date: 20220720
  Serious: Yes (Other)
  Sender: FDA-Public Use
  Company Number: CA-BRISTOL-MYERS SQUIBB COMPANY-2022-029455

PATIENT
  Age: 66 Year
  Sex: Female
  Weight: 67.1 kg

DRUGS (7)
  1. ABRAXANE [Suspect]
     Active Substance: PACLITAXEL
     Indication: Breast cancer metastatic
     Route: 042
     Dates: start: 20220422
  2. ABRAXANE [Suspect]
     Active Substance: PACLITAXEL
     Route: 042
     Dates: start: 20220325
  3. ABRAXANE [Suspect]
     Active Substance: PACLITAXEL
     Route: 065
  4. PERINDOPRIL [Concomitant]
     Active Substance: PERINDOPRIL
     Indication: Product used for unknown indication
     Route: 065
  5. PANTOPRAZOLE [Concomitant]
     Active Substance: PANTOPRAZOLE
     Indication: Product used for unknown indication
     Route: 065
  6. VITAMINS [Concomitant]
     Active Substance: VITAMINS
     Indication: Product used for unknown indication
     Route: 065
  7. CREON [Concomitant]
     Active Substance: PANCRELIPASE AMYLASE\PANCRELIPASE LIPASE\PANCRELIPASE PROTEASE
     Indication: Product used for unknown indication
     Route: 065

REACTIONS (6)
  - Feeling abnormal [Unknown]
  - Nausea [Unknown]
  - Fatigue [Unknown]
  - Asthenia [Unknown]
  - Blood disorder [Unknown]
  - Off label use [Unknown]

NARRATIVE: CASE EVENT DATE: 20220101
